FAERS Safety Report 4900800-5 (Version None)
Quarter: 2006Q1

REPORT INFORMATION
  Report Type: 
  Country: None (occurrence: None)
  Receive Date: 20060201
  Receipt Date: 20060123
  Transmission Date: 20060701
  Serious: Yes (Other)
  Sender: FDA-Public Use
  Company Number: 2006-01-1344

PATIENT
  Age: 70 Year
  Sex: Male

DRUGS (2)
  1. VIRAFERONPEG [Suspect]
     Dosage: SUBCUTANEOUS
     Route: 058
  2. REBETOL [Suspect]
     Dosage: ORAL
     Route: 048

REACTIONS (2)
  - RAYNAUD'S PHENOMENON [None]
  - VASCULITIS NECROTISING [None]
